FAERS Safety Report 5830514-9 (Version None)
Quarter: 2008Q3

REPORT INFORMATION
  Report Type: 
  Country: None (occurrence: None)
  Receive Date: 20080801
  Receipt Date: 20070619
  Transmission Date: 20090109
  Serious: No
  Sender: FDA-Public Use
  Company Number: US-BRISTOL-MYERS SQUIBB COMPANY-13819339

PATIENT
  Age: 79 Year
  Sex: Male
  Weight: 77 kg

DRUGS (13)
  1. COUMADIN [Suspect]
     Indication: ATRIAL FIBRILLATION
     Dosage: 5 DAY REPEATING DOSING SCHEDULE: 7.5MG 2/DAYS, 5MG 1/DAY, 7.5MG 1/DAY, AND 5MG 1/DAY
     Route: 048
     Dates: start: 19941209
  2. ATENOLOL (INV) [Concomitant]
  3. DIGITEK [Concomitant]
  4. FLOMAX [Concomitant]
  5. PROSCAR [Concomitant]
  6. TRUSOPT [Concomitant]
  7. CITRUCEL [Concomitant]
  8. MAGNESIUM SULFATE [Concomitant]
  9. FOLIC ACID [Concomitant]
  10. SELENIUM [Concomitant]
  11. LUTEIN + ZEAXANTHIN + CRYPTOXANTHIN [Concomitant]
  12. LYCOPENE [Concomitant]
  13. NEXIUM [Concomitant]

REACTIONS (1)
  - INTERNATIONAL NORMALISED RATIO DECREASED [None]
